FAERS Safety Report 10725090 (Version 1)
Quarter: 2015Q1

REPORT INFORMATION
  Report Type: Spontaneous
  Country: US (occurrence: US)
  Receive Date: 20150120
  Receipt Date: 20150120
  Transmission Date: 20150721
  Serious: Yes (Disabling)
  Sender: FDA-Public Use
  Company Number: US-FRI-1000073716

PATIENT
  Age: 60 Year
  Sex: Female

DRUGS (2)
  1. COUMADIN [Concomitant]
     Active Substance: WARFARIN SODIUM
  2. BYSTOLIC [Suspect]
     Active Substance: NEBIVOLOL HYDROCHLORIDE
     Indication: HYPERTENSION
     Dosage: 5MG
     Dates: start: 2010

REACTIONS (3)
  - Concussion [Recovering/Resolving]
  - Fall [Recovering/Resolving]
  - Head injury [Recovering/Resolving]

NARRATIVE: CASE EVENT DATE: 201403
